FAERS Safety Report 16542021 (Version 1)
Quarter: 2019Q3

REPORT INFORMATION
  Report Type: Spontaneous
  Country: DE (occurrence: DE)
  Receive Date: 20190708
  Receipt Date: 20190708
  Transmission Date: 20191004
  Serious: Yes (Other)
  Sender: FDA-Public Use
  Company Number: DE-JNJFOC-20190636337

PATIENT
  Age: 42 Year
  Sex: Female
  Weight: 70 kg

DRUGS (11)
  1. CEFASEL [Concomitant]
     Dosage: UNK
     Dates: start: 2005
  2. XARELTO [Suspect]
     Active Substance: RIVAROXABAN
     Indication: ANTICOAGULANT THERAPY
     Dosage: 20 MG, QD
     Route: 048
     Dates: start: 2015
  3. L-THYROXIN [Concomitant]
     Active Substance: LEVOTHYROXINE SODIUM
     Dosage: 75 ?G, QD
     Route: 048
     Dates: start: 2005
  4. COLECALCIFEROL [Concomitant]
     Active Substance: CHOLECALCIFEROL
     Dosage: VITAMIN D VERLA
     Dates: start: 2015
  5. HYLO COMOD [Concomitant]
     Active Substance: HYALURONATE SODIUM
     Dosage: UNK
     Dates: start: 2019
  6. MAXIM (DIENOGEST/ETHINYLESTRADIOL) [Suspect]
     Active Substance: DIENOGEST\ETHINYL ESTRADIOL
     Indication: HORMONAL CONTRACEPTION
     Route: 048
     Dates: start: 20090903
  7. MAXIM (DIENOGEST/ETHINYLESTRADIOL) [Suspect]
     Active Substance: DIENOGEST\ETHINYL ESTRADIOL
     Indication: ENDOMETRIOSIS
  8. FERRO-SANOL DUODENAL [Concomitant]
     Active Substance: FERROUS GLYCINE SULFATE
     Dosage: 100 MG, QD
     Dates: start: 2018
  9. OPTIVE [Concomitant]
     Active Substance: CARBOXYMETHYLCELLULOSE SODIUM\GLYCERIN
     Dosage: UNK
     Dates: start: 2009
  10. THYBON [Concomitant]
     Active Substance: LIOTHYRONINE
     Dosage: UNK
     Dates: start: 2014
  11. OMEPRAZOLE. [Concomitant]
     Active Substance: OMEPRAZOLE
     Dates: start: 2010

REACTIONS (4)
  - Thrombosis [Unknown]
  - Contraindicated product administered [Unknown]
  - Deep vein thrombosis [Unknown]
  - Off label use [Unknown]

NARRATIVE: CASE EVENT DATE: 201506
